FAERS Safety Report 14776429 (Version 1)
Quarter: 2018Q2

REPORT INFORMATION
  Report Type: Spontaneous
  Country: US (occurrence: US)
  Receive Date: 20180418
  Receipt Date: 20180418
  Transmission Date: 20180711
  Serious: Yes (Other)
  Sender: FDA-Public Use
  Company Number: US-SA-2018SA024191

PATIENT

DRUGS (2)
  1. CAPRELSA [Suspect]
     Active Substance: VANDETANIB
     Route: 048
     Dates: start: 201411, end: 201504
  2. LYNPARZA [Concomitant]
     Active Substance: OLAPARIB
     Dosage: STRENGTH: 300 MG
     Route: 048

REACTIONS (2)
  - Disease progression [Unknown]
  - Product use in unapproved indication [Unknown]
